FAERS Safety Report 10102528 (Version 1)
Quarter: 2014Q2

REPORT INFORMATION
  Report Type: Spontaneous
  Country: AT (occurrence: AT)
  Receive Date: 20140424
  Receipt Date: 20140424
  Transmission Date: 20141212
  Serious: Yes (Other)
  Sender: FDA-Public Use
  Company Number: AT-ACTAVIS-2014-07925

PATIENT
  Age: 49 Year
  Sex: Female
  Weight: 62 kg

DRUGS (1)
  1. PACLITAXEL (UNKNOWN) [Suspect]
     Indication: OVARIAN NEOPLASM
     Dosage: 175 MG/M2, UNKNOWN
     Route: 042
     Dates: start: 20140318, end: 20140318

REACTIONS (4)
  - Anaphylactic reaction [Recovered/Resolved]
  - Hypotonia [Recovered/Resolved]
  - Tachycardia [Recovered/Resolved]
  - Dyspnoea [Recovered/Resolved]
